FAERS Safety Report 7264789-9 (Version None)
Quarter: 2011Q1

REPORT INFORMATION
  Report Type: 
  Country: None (occurrence: None)
  Receive Date: 20110131
  Receipt Date: 20110120
  Transmission Date: 20110831
  Serious: Yes (Hospitalization)
  Sender: FDA-Public Use
  Company Number: DE-US-EMD SERONO, INC.-7026223

PATIENT
  Sex: Female

DRUGS (4)
  1. REBIF [Suspect]
     Dates: start: 20101221
  2. ACETAMINOPHEN [Concomitant]
  3. REBIF [Suspect]
     Indication: MULTIPLE SCLEROSIS
     Dates: start: 20110108
  4. REBIF [Suspect]
     Route: 058
     Dates: start: 20081222, end: 20101001

REACTIONS (6)
  - SOFT TISSUE NECROSIS [None]
  - OEDEMA PERIPHERAL [None]
  - INJECTION SITE INFLAMMATION [None]
  - INFLAMMATION [None]
  - INTRA-ABDOMINAL HAEMATOMA [None]
  - PYREXIA [None]
